FAERS Safety Report 4956455-7 (Version None)
Quarter: 2006Q1

REPORT INFORMATION
  Report Type: 
  Country: None (occurrence: None)
  Receive Date: 20060328
  Receipt Date: 20060328
  Transmission Date: 20060701
  Serious: Yes (Other)
  Sender: FDA-Public Use
  Company Number: None

PATIENT
  Age: 34 Year
  Sex: Female
  Weight: 68.9467 kg

DRUGS (1)
  1. WOMEN'S LAXITIVE WALGREENS [Suspect]
     Indication: CONSTIPATION
     Dosage: ONE TABLET TWICE IN TWO HOURS PO
     Route: 048
     Dates: start: 20060324, end: 20060324

REACTIONS (2)
  - ABDOMINAL PAIN UPPER [None]
  - VOMITING [None]
